FAERS Safety Report 24658726 (Version 1)
Quarter: 2024Q4

REPORT INFORMATION
  Report Type: Spontaneous
  Country: FR (occurrence: FR)
  Receive Date: 20241125
  Receipt Date: 20241125
  Transmission Date: 20250115
  Serious: Yes (Life-Threatening, Other)
  Sender: B BRAUN
  Company Number: FR-B.Braun Medical Inc.-2165862

PATIENT
  Age: 27 Year
  Sex: Male

DRUGS (1)
  1. ACETAMINOPHEN [Suspect]
     Active Substance: ACETAMINOPHEN
     Indication: Poisoning deliberate
     Dates: start: 20240919

REACTIONS (3)
  - Hepatitis acute [Not Recovered/Not Resolved]
  - Off label use [Not Recovered/Not Resolved]
  - Acute kidney injury [Not Recovered/Not Resolved]
